FAERS Safety Report 21473085 (Version 1)
Quarter: 2022Q4

REPORT INFORMATION
  Report Type: Report from Study
  Country: BR (occurrence: BR)
  Receive Date: 20221018
  Receipt Date: 20221018
  Transmission Date: 20230113
  Serious: Yes (Other)
  Sender: FDA-Public Use
  Company Number: BR-JNJFOC-20221024923

PATIENT
  Sex: Female
  Weight: 69 kg

DRUGS (2)
  1. INFLIXIMAB [Suspect]
     Active Substance: INFLIXIMAB
     Indication: Rheumatoid arthritis
     Route: 041
     Dates: start: 20150501, end: 202112
  2. PROLIA [Concomitant]
     Active Substance: DENOSUMAB
     Indication: Bone disorder
     Route: 065

REACTIONS (3)
  - Gastrointestinal carcinoma [Unknown]
  - Crohn^s disease [Unknown]
  - Haemorrhage [Unknown]
